FAERS Safety Report 18570814 (Version 2)
Quarter: 2021Q1

REPORT INFORMATION
  Report Type: Spontaneous
  Country: US (occurrence: US)
  Receive Date: 20201202
  Receipt Date: 20210109
  Transmission Date: 20210419
  Serious: Yes (Hospitalization, Other)
  Sender: FDA-Public Use
  Company Number: US-TEVA-2020-US-1853647

PATIENT
  Age: 42 Year
  Sex: Male

DRUGS (3)
  1. BEVACIZUMAB. [Suspect]
     Active Substance: BEVACIZUMAB
     Indication: MACULAR OEDEMA
     Dosage: INTRAVITREAL BEVACIZUMAB INJECTION AT 6?WEEK INTERVALS INITIALLY FOR MACULAR OEDEMA
     Route: 050
  2. TRIAMCINOLONE ACETONIDE. [Suspect]
     Active Substance: TRIAMCINOLONE ACETONIDE
     Indication: MACULAR OEDEMA
     Route: 050
  3. BEVACIZUMAB. [Suspect]
     Active Substance: BEVACIZUMAB
     Dosage: THE FREQUENCY OF INTRAVITREAL BEVACIZUMAB INJECTION WAS REDUCED TO 4 WEEK INTERVAL
     Route: 050

REACTIONS (3)
  - Uveitis [Recovering/Resolving]
  - Drug ineffective [Unknown]
  - Non-infectious endophthalmitis [Recovering/Resolving]
